FAERS Safety Report 6915219-5 (Version None)
Quarter: 2010Q3

REPORT INFORMATION
  Report Type: 
  Country: None (occurrence: None)
  Receive Date: 20100805
  Receipt Date: 20100805
  Transmission Date: 20110219
  Serious: Yes (Hospitalization, Disabling, Other)
  Sender: FDA-Public Use
  Company Number: None

PATIENT
  Age: 34 Year
  Sex: Female
  Weight: 59.8748 kg

DRUGS (1)
  1. APIDRA [Suspect]
     Indication: DIABETES MELLITUS
     Dosage: 35 UNITS PER DAY ALL DAY SQ
     Route: 058
     Dates: start: 20100501, end: 20100707

REACTIONS (10)
  - ANXIETY [None]
  - DIARRHOEA [None]
  - FEELING ABNORMAL [None]
  - GASTRIC DISORDER [None]
  - MENORRHAGIA [None]
  - MENSTRUATION IRREGULAR [None]
  - MYALGIA [None]
  - PANIC ATTACK [None]
  - PRURITUS GENERALISED [None]
  - SYNCOPE [None]
